FAERS Safety Report 4900611-0 (Version None)
Quarter: 2006Q1

REPORT INFORMATION
  Report Type: 
  Country: None (occurrence: None)
  Receive Date: 20060201
  Receipt Date: 20060110
  Transmission Date: 20060701
  Serious: Yes (Hospitalization, Other)
  Sender: FDA-Public Use
  Company Number: USA041183551

PATIENT
  Age: 73 Year
  Sex: Female

DRUGS (2)
  1. FORTEO [Suspect]
     Indication: OSTEOPOROSIS
     Dosage: 20 UG
     Dates: start: 20040422
  2. FORTEO PEN, 250MCG/ML (3ML) (FORTEO PEN 250MCG/ML (3ML)) PEN, DISPOSAB [Concomitant]

REACTIONS (5)
  - DEVICE FAILURE [None]
  - FALL [None]
  - FEMUR FRACTURE [None]
  - INCORRECT DOSE ADMINISTERED [None]
  - PHARMACEUTICAL PRODUCT COMPLAINT [None]
